FAERS Safety Report 11153105 (Version 1)
Quarter: 2015Q2

REPORT INFORMATION
  Report Type: Spontaneous
  Country: GB (occurrence: GB)
  Receive Date: 20150601
  Receipt Date: 20150601
  Transmission Date: 20150821
  Serious: Yes (Hospitalization, Other)
  Sender: FDA-Public Use
  Company Number: GB-GLAXOSMITHKLINE-GB2015GSK073606

PATIENT
  Age: 11 Year
  Sex: Female

DRUGS (3)
  1. ABACAVIR [Suspect]
     Active Substance: ABACAVIR
     Indication: HIV INFECTION WHO CLINICAL STAGE III
     Route: 065
  2. LAMIVUDINE. [Suspect]
     Active Substance: LAMIVUDINE
     Indication: HIV INFECTION WHO CLINICAL STAGE III
     Dosage: UNK
     Route: 065
  3. EFAVIRENZ [Suspect]
     Active Substance: EFAVIRENZ
     Indication: HIV INFECTION WHO CLINICAL STAGE III
     Dosage: UNK
     Route: 065

REACTIONS (9)
  - Varicella zoster virus infection [Recovering/Resolving]
  - Cerebrovascular accident [Recovering/Resolving]
  - Carotid artery occlusion [Unknown]
  - VIIth nerve paralysis [Recovering/Resolving]
  - Cerebral infarction [Recovering/Resolving]
  - Carotid artery stenosis [Unknown]
  - Hemiplegia [Recovering/Resolving]
  - Aphasia [Recovering/Resolving]
  - Immune reconstitution inflammatory syndrome [Unknown]
